FAERS Safety Report 6584054-2 (Version None)
Quarter: 2010Q1

REPORT INFORMATION
  Report Type: 
  Country: None (occurrence: None)
  Receive Date: 20100213
  Receipt Date: 20100213
  Transmission Date: 20100710
  Serious: Yes (Hospitalization)
  Sender: FDA-Public Use
  Company Number: None

PATIENT
  Age: 56 Year
  Sex: Female
  Weight: 65.6 kg

DRUGS (8)
  1. DOXORUBICIN HCL [Suspect]
     Indication: BREAST CANCER METASTATIC
     Dosage: 67MG EVERY THREE WEEKS IV
     Route: 042
     Dates: start: 20100126, end: 20100126
  2. DOXORUBICIN HCL [Suspect]
  3. IBUPROFEN [Concomitant]
  4. OXYCODONE HCL [Concomitant]
  5. CALCIUM/MAGNESIUM/ZINC [Concomitant]
  6. VITAMIN D [Concomitant]
  7. DEXEMETHASONE [Concomitant]
  8. ZOFRAN [Concomitant]

REACTIONS (3)
  - ARTHRALGIA [None]
  - NEUTROPENIA [None]
  - PYREXIA [None]
